FAERS Safety Report 10121118 (Version 2)
Quarter: 2014Q2

REPORT INFORMATION
  Report Type: Spontaneous
  Country: JP (occurrence: JP)
  Receive Date: 20140425
  Receipt Date: 20140515
  Transmission Date: 20141212
  Serious: Yes (Other)
  Sender: FDA-Public Use
  Company Number: JP-ASTRAZENECA-2014SE28169

PATIENT
  Sex: Female

DRUGS (7)
  1. SEROQUEL [Suspect]
     Route: 048
  2. SEROQUEL [Suspect]
     Route: 048
  3. AKINETON [Suspect]
     Route: 065
  4. AKINETON [Suspect]
     Route: 065
  5. CYMBALTA [Concomitant]
  6. HIRNAMIN [Concomitant]
  7. DIAZEPAM [Concomitant]

REACTIONS (7)
  - Blood lactate dehydrogenase increased [Unknown]
  - Neuroleptic malignant syndrome [Recovering/Resolving]
  - Blood creatine phosphokinase increased [Unknown]
  - Urinary tract infection [Unknown]
  - Agitation [Unknown]
  - Pyrexia [Unknown]
  - Drug dose omission [Recovered/Resolved]
